FAERS Safety Report 25541134 (Version 1)
Quarter: 2025Q3

REPORT INFORMATION
  Report Type: Report from Study
  Country: US (occurrence: US)
  Receive Date: 20250710
  Receipt Date: 20250710
  Transmission Date: 20251021
  Serious: No
  Sender: MALLINCKRODT
  Company Number: US-MALLINCKRODT-MNK202504187

PATIENT
  Sex: Male

DRUGS (1)
  1. CORTICOTROPIN [Suspect]
     Active Substance: CORTICOTROPIN
     Indication: Arthralgia
     Dosage: UNKNOWN

REACTIONS (3)
  - Stress [Unknown]
  - Tinea infection [Not Recovered/Not Resolved]
  - Inappropriate schedule of product administration [Unknown]
